FAERS Safety Report 6128647-5 (Version None)
Quarter: 2009Q1

REPORT INFORMATION
  Report Type: 
  Country: None (occurrence: None)
  Receive Date: 20090323
  Receipt Date: 20090311
  Transmission Date: 20090719
  Serious: Yes (Other)
  Sender: FDA-Public Use
  Company Number: US-PFIZER INC-2009183686

PATIENT
  Sex: Male

DRUGS (7)
  1. CHANTIX [Suspect]
     Indication: SMOKING CESSATION THERAPY
     Dates: end: 20090307
  2. ACETYLSALICYLIC ACID [Concomitant]
  3. PLAVIX [Concomitant]
  4. STATINS [Concomitant]
  5. VYTORIN [Concomitant]
  6. NORVASC [Concomitant]
  7. ZESTORETIC [Concomitant]

REACTIONS (2)
  - ABNORMAL DREAMS [None]
  - ABNORMAL SLEEP-RELATED EVENT [None]
